FAERS Safety Report 4639510-0 (Version None)
Quarter: 2005Q2

REPORT INFORMATION
  Report Type: 
  Country: None (occurrence: None)
  Receive Date: 20050418
  Receipt Date: 20050406
  Transmission Date: 20051028
  Serious: Yes (Hospitalization)
  Sender: FDA-Public Use
  Company Number: 2005056410

PATIENT
  Age: 70 Year
  Sex: Female

DRUGS (9)
  1. ALDACTONE [Suspect]
     Indication: ILL-DEFINED DISORDER
     Dosage: 100 MG (100 MG, DAILY)
     Dates: end: 19981229
  2. CAPTOPRIL [Suspect]
     Indication: ILL-DEFINED DISORDER
     Dosage: 25 MG (25 MG, DAILY)
     Dates: end: 19981230
  3. ETACRYNIC ACID (ETACRYNIC ACID) [Suspect]
     Indication: ILL-DEFINED DISORDER
     Dosage: 50 MG (50 MG, DAILY)
     Dates: end: 19981230
  4. NEFAZODONE HCL [Suspect]
     Indication: DEPRESSION
     Dosage: 400 MG (400 MG, DAILY)
  5. DOCUSATE SODIUM (DOCUSATE SODIUM) [Concomitant]
  6. PSYLLIUM HYDROPHILIC MUCILLOID (PSYLLIUM HYDROPHILIC MUCILLOID) [Concomitant]
  7. MORPHINE SULFATE [Concomitant]
  8. TEMAZEPAM [Concomitant]
  9. LEVOTHYROXINE SODIUM [Concomitant]

REACTIONS (5)
  - ABDOMINAL PAIN LOWER [None]
  - HYPERKALAEMIA [None]
  - HYPONATRAEMIA [None]
  - OEDEMA PERIPHERAL [None]
  - RENAL IMPAIRMENT [None]
